FAERS Safety Report 7805327-9 (Version None)
Quarter: 2011Q4

REPORT INFORMATION
  Report Type: 
  Country: None (occurrence: None)
  Receive Date: 20111010
  Receipt Date: 20110928
  Transmission Date: 20120403
  Serious: Yes (Hospitalization)
  Sender: FDA-Public Use
  Company Number: JP-SANOFI-AVENTIS-2011SA064306

PATIENT
  Age: 37 Year
  Sex: Male

DRUGS (3)
  1. ARAVA [Suspect]
     Route: 065
     Dates: start: 20041209, end: 20041220
  2. ARAVA [Suspect]
     Route: 065
     Dates: start: 20040624
  3. ARAVA [Suspect]
     Route: 065
     Dates: start: 20030919, end: 20040528

REACTIONS (2)
  - HEPATITIS C [None]
  - HEPATIC ENZYME INCREASED [None]
